FAERS Safety Report 8194166-8 (Version None)
Quarter: 2012Q1

REPORT INFORMATION
  Report Type: 
  Country: None (occurrence: None)
  Receive Date: 20120308
  Receipt Date: 20120227
  Transmission Date: 20120608
  Serious: Yes (Hospitalization)
  Sender: FDA-Public Use
  Company Number: BE-ELI_LILLY_AND_COMPANY-BE201112003025

PATIENT
  Sex: Female

DRUGS (4)
  1. OMEPRAZOLE [Concomitant]
  2. SPASMOMEN [Concomitant]
  3. METHOTREXATE [Concomitant]
     Indication: ARTHRITIS
     Dosage: UNK
     Dates: end: 20120101
  4. FORTEO [Suspect]
     Indication: OSTEOPOROSIS
     Dosage: 20 UG, QD
     Dates: start: 20110706

REACTIONS (3)
  - FATIGUE [None]
  - ANAEMIA [None]
  - ASTHENIA [None]
